FAERS Safety Report 5474043-3 (Version None)
Quarter: 2007Q4

REPORT INFORMATION
  Report Type: 
  Country: None (occurrence: None)
  Receive Date: 20071002
  Receipt Date: 20070924
  Transmission Date: 20080405
  Serious: Yes (Other)
  Sender: FDA-Public Use
  Company Number: PHEH2006US01254

PATIENT
  Age: 50 Year
  Sex: Female
  Weight: 76.19 kg

DRUGS (10)
  1. AREDIA [Suspect]
     Indication: METASTASES TO BONE
     Dosage: UNK,UNK
     Route: 042
     Dates: end: 20021106
  2. ZOMETA [Suspect]
     Indication: METASTASES TO BONE
     Dosage: UNK,UNK
     Route: 042
     Dates: start: 20021204, end: 20050624
  3. ARIMIDEX [Concomitant]
     Dosage: 1 MG, QD
     Route: 048
  4. ZOCOR [Concomitant]
     Dosage: 40 MG, QD
     Route: 048
  5. DIOVAN [Concomitant]
     Dosage: 80/12.5
     Route: 048
  6. HYDROCHLOROTHIAZIDE [Concomitant]
     Dosage: 25 MG, QD
     Route: 048
  7. MS CONTIN [Concomitant]
     Dosage: 15 MG, BID
     Route: 048
  8. VIOXX [Concomitant]
     Dosage: 25 MG, QD
     Route: 048
  9. CELEXA [Concomitant]
     Dosage: 40 MG, QD
     Route: 048
  10. AMITRIPTYLINE HCL [Concomitant]
     Dosage: 50 MG, QD
     Route: 048

REACTIONS (9)
  - BONE DISORDER [None]
  - COMPUTERISED TOMOGRAM [None]
  - LYMPHADENOPATHY [None]
  - METASTASES TO BONE [None]
  - MOUTH ULCERATION [None]
  - NASAL MUCOSAL DISORDER [None]
  - OOPHORECTOMY [None]
  - OSTEONECROSIS [None]
  - PRIMARY SEQUESTRUM [None]
